FAERS Safety Report 15291502 (Version 1)
Quarter: 2018Q3

REPORT INFORMATION
  Report Type: Spontaneous
  Country: US (occurrence: US)
  Receive Date: 20180817
  Receipt Date: 20180817
  Transmission Date: 20181010
  Serious: No
  Sender: FDA-Public Use
  Company Number: US-BAUSCH-BL-2018-021954

PATIENT
  Age: 42 Year
  Sex: Female
  Weight: 90.8 kg

DRUGS (1)
  1. SILIQ [Suspect]
     Active Substance: BRODALUMAB
     Indication: PSORIASIS
     Route: 058
     Dates: start: 201805

REACTIONS (4)
  - Injection site pain [Recovered/Resolved]
  - Drug dose omission [Unknown]
  - Administration site bruise [Unknown]
  - Needle issue [Unknown]

NARRATIVE: CASE EVENT DATE: 20180803
